FAERS Safety Report 24109415 (Version 3)
Quarter: 2024Q3

REPORT INFORMATION
  Report Type: Report from Study
  Country: US (occurrence: US)
  Receive Date: 20240718
  Receipt Date: 20240830
  Transmission Date: 20241017
  Serious: Yes (Hospitalization, Other)
  Sender: TAKEDA
  Company Number: US-TAKEDA-2024TUS029058

PATIENT
  Age: 0 Year
  Sex: Male
  Weight: 8.57 kg

DRUGS (8)
  1. HUMAN IMMUNOGLOBULIN G [Suspect]
     Active Substance: HUMAN IMMUNOGLOBULIN G
     Indication: Combined immunodeficiency
     Dosage: 3.5 GRAM, Q4WEEKS
     Route: 042
     Dates: start: 20240104
  2. HUMAN IMMUNOGLOBULIN G [Suspect]
     Active Substance: HUMAN IMMUNOGLOBULIN G
     Dosage: 5 GRAM, Q4WEEKS
     Route: 042
  3. EPINEPHRINE [Concomitant]
     Active Substance: EPINEPHRINE
     Dosage: UNK
     Route: 065
  4. ACETAMINOPHEN [Concomitant]
     Active Substance: ACETAMINOPHEN
     Dosage: UNK
     Route: 065
  5. SODIUM CHLORIDE [Concomitant]
     Active Substance: SODIUM CHLORIDE
     Dosage: UNK
     Route: 065
  6. LIDOCAINE [Concomitant]
     Active Substance: LIDOCAINE
     Dosage: UNK
     Route: 065
  7. CHLORHEXIDINE GLUCONATE [Concomitant]
     Active Substance: CHLORHEXIDINE GLUCONATE
     Dosage: UNK
     Route: 065
  8. DIPHENHYDRAMINE [Concomitant]
     Active Substance: DIPHENHYDRAMINE
     Dosage: UNK
     Route: 065

REACTIONS (4)
  - Anti B antibody positive [Unknown]
  - Autoimmune haemolytic anaemia [Unknown]
  - Dermatitis allergic [Unknown]
  - Poor venous access [Unknown]

NARRATIVE: CASE EVENT DATE: 20240314
